FAERS Safety Report 6996980-0 (Version None)
Quarter: 2010Q3

REPORT INFORMATION
  Report Type: 
  Country: None (occurrence: None)
  Receive Date: 20100918
  Receipt Date: 20090910
  Transmission Date: 20110219
  Serious: No
  Sender: FDA-Public Use
  Company Number: US-WYE-H10573709

PATIENT
  Age: 45 Year
  Sex: Female
  Weight: 86.26 kg

DRUGS (6)
  1. PRISTIQ [Suspect]
     Indication: HOT FLUSH
     Route: 048
     Dates: start: 20090501, end: 20090101
  2. PRISTIQ [Suspect]
     Indication: MENOPAUSAL SYMPTOMS
  3. TRILIPIX [Concomitant]
  4. ACETYLSALICYLIC ACID [Concomitant]
  5. CRESTOR [Concomitant]
  6. LOVASTATIN [Concomitant]

REACTIONS (5)
  - CONDITION AGGRAVATED [None]
  - DRUG INEFFECTIVE [None]
  - DRUG WITHDRAWAL SYNDROME [None]
  - HOT FLUSH [None]
  - HYPOAESTHESIA [None]
